FAERS Safety Report 4803049-X (Version None)
Quarter: 2005Q4

REPORT INFORMATION
  Report Type: 
  Country: None (occurrence: None)
  Receive Date: 20051019
  Receipt Date: 20051007
  Transmission Date: 20060501
  Serious: Yes (Other)
  Sender: FDA-Public Use
  Company Number: GB-GLAXOSMITHKLINE-B0396803A

PATIENT
  Sex: Male

DRUGS (2)
  1. SEROXAT [Suspect]
     Indication: SCHIZOPHRENIA
     Dosage: 30MG PER DAY
     Dates: start: 19960101
  2. SULPIRIDE [Concomitant]
     Indication: SCHIZOPHRENIA

REACTIONS (3)
  - AGGRESSION [None]
  - COMPLETED SUICIDE [None]
  - ILL-DEFINED DISORDER [None]
